FAERS Safety Report 17723313 (Version 1)
Quarter: 2020Q2

REPORT INFORMATION
  Report Type: Report from Study
  Country: PH (occurrence: PH)
  Receive Date: 20200429
  Receipt Date: 20200429
  Transmission Date: 20200714
  Serious: Yes (Death)
  Sender: FDA-Public Use
  Company Number: PH-ASTRAZENECA-2020SE56132

PATIENT
  Age: 21026 Day
  Sex: Female

DRUGS (1)
  1. TAGRISSO [Suspect]
     Active Substance: OSIMERTINIB
     Indication: NON-SMALL CELL LUNG CANCER STAGE IV
     Dosage: 80.0MG UNKNOWN
     Route: 048
     Dates: start: 20191115

REACTIONS (1)
  - Death [Fatal]

NARRATIVE: CASE EVENT DATE: 20191219
